FAERS Safety Report 6544025-9 (Version None)
Quarter: 2010Q1

REPORT INFORMATION
  Report Type: 
  Country: None (occurrence: None)
  Receive Date: 20100120
  Receipt Date: 20100107
  Transmission Date: 20100710
  Serious: Yes (Other)
  Sender: FDA-Public Use
  Company Number: JP-PFIZER INC-2009314479

PATIENT
  Age: 12 Year
  Sex: Female

DRUGS (2)
  1. SOMATROPIN [Suspect]
     Indication: GROWTH HORMONE DEFICIENCY
     Dosage: UNK
     Route: 058
  2. VALPROIC ACID [Concomitant]
     Dosage: 600 MG, 1X/DAY, CURRENTLY

REACTIONS (1)
  - TONIC CONVULSION [None]
